FAERS Safety Report 7549053 (Version 8)
Quarter: 2013Q1

REPORT INFORMATION
  Report Type: Report from Study
  Country: NL (occurrence: NL)
  Receive Date: 20100820
  Receipt Date: 20130117
  Transmission Date: 20140127
  Serious: Yes (Other)
  Sender: FDA-Public Use
  Company Number: NL-ABBOTT-10P-114-0663370-00

PATIENT
  Age: 31 Year
  Sex: Male

DRUGS (6)
  1. HUMIRA [Suspect]
     Indication: PSORIASIS
     Route: 058
     Dates: start: 200805
  2. HUMIRA [Suspect]
     Route: 058
     Dates: start: 20100211, end: 20100601
  3. HYDROCHLOROTHIAZIDE [Concomitant]
     Indication: HYPERTENSION
  4. ADALAT OROS [Concomitant]
     Indication: HYPERTENSION
     Dates: start: 200910
  5. HYDROCORTISON [Concomitant]
     Indication: PRODUCT USED FOR UNKNOWN INDICATION
     Dosage: ONCE A DAY 2 TABLETS AND TWICE A DAY 1 TABLET
     Route: 048
     Dates: end: 20100719
  6. METFORMINE [Concomitant]
     Indication: TYPE 2 DIABETES MELLITUS
     Dates: end: 20090621

REACTIONS (1)
  - Thyroiditis fibrous chronic [Recovered/Resolved]
